FAERS Safety Report 11193636 (Version 2)
Quarter: 2015Q3

REPORT INFORMATION
  Report Type: Spontaneous
  Country: US (occurrence: US)
  Receive Date: 20150616
  Receipt Date: 20150722
  Transmission Date: 20151125
  Serious: Yes (Death)
  Sender: FDA-Public Use
  Company Number: US-UNITED THERAPEUTICS-UNT-2015-005005

PATIENT
  Age: 54 Year
  Sex: Female
  Weight: 62.59 kg

DRUGS (4)
  1. TYVASO [Suspect]
     Active Substance: TREPROSTINIL
     Dosage: 18-54 MICROGRAMS, QID
     Dates: start: 20150422
  2. TYVASO [Suspect]
     Active Substance: TREPROSTINIL
     Indication: PULMONARY ARTERIAL HYPERTENSION
     Dosage: 18-54 MICROGRAMS, QID
     Dates: start: 20150416
  3. TYVASO [Suspect]
     Active Substance: TREPROSTINIL
     Indication: PULMONARY HYPERTENSION
     Dosage: 18-54 MICROGRAMS, QID
     Dates: start: 20150416
  4. ASPIRIN                            /00002701/ [Concomitant]
     Active Substance: ASPIRIN
     Indication: PRODUCT USED FOR UNKNOWN INDICATION

REACTIONS (20)
  - Hypotension [Unknown]
  - Lip pain [Unknown]
  - Nausea [Unknown]
  - Epistaxis [Unknown]
  - Fall [Unknown]
  - Headache [Unknown]
  - Oedema [Unknown]
  - Piloerection [Unknown]
  - Glossodynia [Unknown]
  - Decreased activity [Unknown]
  - Dyspnoea [Not Recovered/Not Resolved]
  - Oral pain [Unknown]
  - Decreased appetite [Unknown]
  - Death [Fatal]
  - Syncope [Unknown]
  - Oxygen consumption increased [Unknown]
  - Dizziness [Unknown]
  - Balance disorder [Unknown]
  - Cough [Unknown]
  - Presyncope [Unknown]

NARRATIVE: CASE EVENT DATE: 201504
